FAERS Safety Report 13012658 (Version 1)
Quarter: 2016Q4

REPORT INFORMATION
  Report Type: Report from Study
  Country: US (occurrence: US)
  Receive Date: 20161209
  Receipt Date: 20161209
  Transmission Date: 20170207
  Serious: Yes (Death, Other)
  Sender: FDA-Public Use
  Company Number: US-BAYER-2016-219487

PATIENT
  Age: 62 Year
  Sex: Female
  Weight: 130.61 kg

DRUGS (1)
  1. ADEMPAS [Suspect]
     Active Substance: RIOCIGUAT
     Indication: PULMONARY ARTERIAL HYPERTENSION
     Dosage: 0.5 MG, TID
     Dates: start: 20161014

REACTIONS (2)
  - Surgery [None]
  - Death [Fatal]

NARRATIVE: CASE EVENT DATE: 201610
